FAERS Safety Report 13685432 (Version 1)
Quarter: 2017Q2

REPORT INFORMATION
  Report Type: Spontaneous
  Country: RO (occurrence: RO)
  Receive Date: 20170623
  Receipt Date: 20170623
  Transmission Date: 20170830
  Serious: Yes (Hospitalization, Other)
  Sender: FDA-Public Use
  Company Number: RO-IMPAX LABORATORIES, INC-2017-IPXL-01571

PATIENT
  Age: 71 Year
  Sex: Male

DRUGS (4)
  1. MIXTARD HUMAN 70/30 [Concomitant]
     Active Substance: INSULIN HUMAN
     Indication: TYPE 2 DIABETES MELLITUS
     Dosage: UNK
     Route: 065
  2. GLIBENCLAMIDE [Concomitant]
     Active Substance: GLYBURIDE
     Indication: TYPE 2 DIABETES MELLITUS
     Dosage: UNK
     Route: 065
  3. METFORMIN HYDROCHLORIDE ER [Suspect]
     Active Substance: METFORMIN HYDROCHLORIDE
     Indication: TYPE 2 DIABETES MELLITUS
     Dosage: UNK
     Route: 065
  4. ACTRAPID [Concomitant]
     Active Substance: INSULIN HUMAN
     Indication: TYPE 2 DIABETES MELLITUS
     Dosage: UNK
     Route: 065

REACTIONS (7)
  - Diabetic retinopathy [Unknown]
  - Essential hypertension [Unknown]
  - Central obesity [Unknown]
  - Peripheral motor neuropathy [Unknown]
  - Diabetes mellitus inadequate control [Unknown]
  - Peripheral venous disease [Unknown]
  - Vitamin B12 decreased [Unknown]
